FAERS Safety Report 8489215-3 (Version None)
Quarter: 2012Q3

REPORT INFORMATION
  Report Type: 
  Country: None (occurrence: None)
  Receive Date: 20120705
  Receipt Date: 20120619
  Transmission Date: 20120928
  Serious: No
  Sender: FDA-Public Use
  Company Number: US-ASTRAZENECA-2010SE06578

PATIENT
  Age: 53 Year
  Sex: Female
  Weight: 95.3 kg

DRUGS (20)
  1. SEROQUEL [Suspect]
     Route: 048
  2. SEROQUEL [Suspect]
     Route: 048
  3. ZITHROMAX [Concomitant]
     Indication: SINUSITIS
  4. SEROQUEL [Suspect]
     Route: 048
  5. SEROQUEL [Suspect]
     Route: 048
  6. SEROQUEL [Suspect]
     Route: 048
  7. VITAMIN B12 SHOTS [Concomitant]
  8. SEROQUEL [Suspect]
     Route: 048
  9. SEROQUEL [Suspect]
     Route: 048
     Dates: end: 20100301
  10. SEROQUEL [Suspect]
     Route: 048
     Dates: end: 20100301
  11. SEROQUEL [Suspect]
     Route: 048
  12. SEROQUEL [Suspect]
     Indication: DRUG WITHDRAWAL MAINTENANCE THERAPY
     Route: 048
  13. SEROQUEL [Suspect]
     Indication: ANXIETY
     Route: 048
  14. SEROQUEL [Suspect]
     Indication: SLEEP DISORDER
     Route: 048
  15. SEROQUEL [Suspect]
     Route: 048
     Dates: end: 20100301
  16. SEROQUEL [Suspect]
     Route: 048
  17. SEROQUEL [Suspect]
     Route: 048
     Dates: end: 20100301
  18. SEROQUEL [Suspect]
     Indication: BIPOLAR I DISORDER
     Route: 048
  19. PAXIL [Concomitant]
  20. ESTRADIOL [Concomitant]
     Indication: HYPERHIDROSIS

REACTIONS (18)
  - HEADACHE [None]
  - NERVOUSNESS [None]
  - PARANOIA [None]
  - HYPERHIDROSIS [None]
  - DYSPNOEA [None]
  - VOMITING [None]
  - CHILLS [None]
  - NASOPHARYNGITIS [None]
  - STRESS [None]
  - HEARING IMPAIRED [None]
  - SINUSITIS [None]
  - DIZZINESS [None]
  - DRUG INEFFECTIVE [None]
  - WITHDRAWAL SYNDROME [None]
  - MALAISE [None]
  - DRUG DOSE OMISSION [None]
  - WHITE BLOOD CELL COUNT INCREASED [None]
  - INSOMNIA [None]
